FAERS Safety Report 16345778 (Version 1)
Quarter: 2019Q2

REPORT INFORMATION
  Report Type: Spontaneous
  Country: US (occurrence: US)
  Receive Date: 20190523
  Receipt Date: 20190523
  Transmission Date: 20190711
  Serious: No
  Sender: FDA-Public Use
  Company Number: US-LUPIN PHARMACEUTICALS INC.-2019-02115

PATIENT
  Sex: Female

DRUGS (1)
  1. DULOXETINE DELAYED-RELEASE CAPSULES 20 MG [Suspect]
     Active Substance: DULOXETINE
     Indication: PAIN
     Dosage: 20 MILLIGRAM, BID
     Route: 065

REACTIONS (6)
  - Pain [Unknown]
  - Pruritus generalised [Unknown]
  - Dysphagia [Unknown]
  - Adverse event [Unknown]
  - Insomnia [Unknown]
  - Drug ineffective [Unknown]
